FAERS Safety Report 10257876 (Version 2)
Quarter: 2014Q2

REPORT INFORMATION
  Report Type: Spontaneous
  Country: US (occurrence: US)
  Receive Date: 20140625
  Receipt Date: 20140625
  Transmission Date: 20141212
  Serious: Yes (Life-Threatening, Hospitalization, Other)
  Sender: FDA-Public Use
  Company Number: US-BRISTOL-MYERS SQUIBB COMPANY-20597266

PATIENT
  Age: 66 Year
  Sex: Male

DRUGS (1)
  1. YERVOY [Suspect]
     Indication: METASTATIC MALIGNANT MELANOMA
     Dosage: LAST DOSE ON:29JAN2014.?4 DOSES
     Dates: start: 201311, end: 20140129

REACTIONS (4)
  - Hypotension [Unknown]
  - Adrenal insufficiency [Unknown]
  - Hepatotoxicity [Unknown]
  - Gastrointestinal haemorrhage [Unknown]
